FAERS Safety Report 8974766 (Version 2)
Quarter: 2013Q1

REPORT INFORMATION
  Report Type: Spontaneous
  Country: US (occurrence: None)
  Receive Date: 20121211
  Receipt Date: 20130222
  Transmission Date: 20140127
  Serious: Yes (Other)
  Sender: FDA-Public Use
  Company Number: VAL_01022_2012

PATIENT
  Age: 84 Year
  Sex: Female
  Weight: 70.31 kg

DRUGS (11)
  1. METOPROLOL [Suspect]
     Dosage: IN THE PM DAILY UNTIL CONTINUING?
  2. COLACE [Suspect]
  3. OMEPRAZOLE [Suspect]
     Indication: PRODUCT USED FOR UNKNOWN INDICATION
     Dosage: 1 DF IN AM, 1 DR IN PM UNKNOWN UNTIL CONTINUING
  4. VITAMINS NOS [Suspect]
     Indication: PRODUCT USED FOR UNKNOWN INDICATION
     Dosage: 1 IN THE MORNING UNKNOWN UNTIL CONTINUING
  5. SPIRONOLACTONE AND HYDROCHLOROTHIAZIDE [Suspect]
     Indication: PRODUCT USED FOR UNKNOWN INDICATION
     Dosage: 25/25 IN MORNING AS NEEDED  UNKNOWN UNTIL CONTINUING?
  6. SUPER B COMPLEX /01995301/ (NOT SPECIFIED) [Concomitant]
     Dosage: 1 DF IN THE MORNING   UNKNOWN UNTIL CONTINUING?
  7. OMEGA 3 /06852001/ (NOT SPECIFIED) [Concomitant]
     Dosage: 1 DF IN THE MORNING UNKNOWN UNTIL CONTINUING?
  8. BIOTIN [Suspect]
     Indication: PRODUCT USED FOR UNKNOWN INDICATION
     Dosage: IN THE MORNING UNKNOWN UNTIL CONTINUING?
  9. CALTRATE WITH VITAMIN D [Suspect]
     Indication: PRODUCT USED FOR UNKNOWN INDICATION
     Dosage: 6000^S SOFT CHEWS IN THE MORNING UNKNOWN UNTIL CONTINUING?
  10. PROBIOTICS NOS [Suspect]
     Indication: PRODUCT USED FOR UNKNOWN INDICATION
     Dosage: UNKNOWN UNTIL NOT CONTINUING?
  11. PRAVASTATIN [Suspect]
     Indication: PRODUCT USED FOR UNKNOWN INDICATION
     Dosage: IN THE PM UNKNOWN UNTIL CONTINUING?

REACTIONS (1)
  - Blindness transient [None]
